FAERS Safety Report 12428353 (Version 3)
Quarter: 2016Q3

REPORT INFORMATION
  Report Type: Spontaneous
  Country: US (occurrence: US)
  Receive Date: 20160411
  Receipt Date: 20160901
  Transmission Date: 20161109
  Serious: Yes (Hospitalization, Other)
  Sender: FDA-Public Use
  Company Number: US-RELYPSA-RLY2016000262

PATIENT
  Age: 75 Year
  Sex: Male

DRUGS (14)
  1. GLIMEPIRIDE. [Concomitant]
     Active Substance: GLIMEPIRIDE
  2. RANEXA [Concomitant]
     Active Substance: RANOLAZINE
  3. PREDNISONE. [Concomitant]
     Active Substance: PREDNISONE
  4. METFORMIN [Concomitant]
     Active Substance: METFORMIN HYDROCHLORIDE
  5. CRESTOR [Concomitant]
     Active Substance: ROSUVASTATIN CALCIUM
  6. VESICARE [Concomitant]
     Active Substance: SOLIFENACIN SUCCINATE
  7. SINGULAIR [Concomitant]
     Active Substance: MONTELUKAST SODIUM
  8. SYMBICORT [Concomitant]
     Active Substance: BUDESONIDE\FORMOTEROL FUMARATE DIHYDRATE
  9. VELTASSA [Suspect]
     Active Substance: PATIROMER
     Indication: HYPERKALAEMIA
     Dosage: 8.4 G, QD
     Route: 048
     Dates: start: 20160113, end: 20160311
  10. PROTONIX                           /00661201/ [Concomitant]
     Active Substance: OMEPRAZOLE
  11. PLAVIX [Concomitant]
     Active Substance: CLOPIDOGREL BISULFATE
  12. LANTUS [Concomitant]
     Active Substance: INSULIN GLARGINE
  13. NORVASC [Concomitant]
     Active Substance: AMLODIPINE BESYLATE
  14. SPIRIVA [Concomitant]
     Active Substance: TIOTROPIUM BROMIDE MONOHYDRATE

REACTIONS (6)
  - Lung abscess [Recovering/Resolving]
  - Pneumothorax [Recovering/Resolving]
  - Fungal infection [Recovering/Resolving]
  - Pneumonia [Recovering/Resolving]
  - Renal failure [Recovering/Resolving]
  - Viral infection [Recovering/Resolving]

NARRATIVE: CASE EVENT DATE: 20160311
